FAERS Safety Report 5824405-7 (Version None)
Quarter: 2008Q3

REPORT INFORMATION
  Report Type: 
  Country: None (occurrence: None)
  Receive Date: 20080728
  Receipt Date: 20080722
  Transmission Date: 20090109
  Serious: Yes (Hospitalization)
  Sender: FDA-Public Use
  Company Number: A0739650A

PATIENT
  Age: 70 Year
  Sex: Male

DRUGS (4)
  1. AVANDIA [Suspect]
     Dosage: 8MG PER DAY
     Route: 048
     Dates: start: 20030623, end: 20070501
  2. GLIPIZIDE [Concomitant]
  3. PROTONIX [Concomitant]
  4. DIOVAN [Concomitant]

REACTIONS (1)
  - MYOCARDIAL INFARCTION [None]
